FAERS Safety Report 9421883 (Version 1)
Quarter: 2013Q3

REPORT INFORMATION
  Report Type: Spontaneous
  Country: US (occurrence: None)
  Receive Date: 20130724
  Receipt Date: 20130724
  Transmission Date: 20140515
  Serious: No
  Sender: FDA-Public Use
  Company Number: None

PATIENT
  Age: 23 Year
  Sex: Female
  Weight: 65.32 kg

DRUGS (3)
  1. PHENYTOIN [Suspect]
     Indication: CONVULSION
     Route: 048
     Dates: start: 20100415, end: 20101019
  2. PHENYTOIN [Concomitant]
  3. VIMPAT [Concomitant]

REACTIONS (3)
  - Rash [None]
  - Treatment failure [None]
  - Convulsion [None]
